FAERS Safety Report 8551936-1 (Version None)
Quarter: 2012Q3

REPORT INFORMATION
  Report Type: 
  Country: None (occurrence: None)
  Receive Date: 20120730
  Receipt Date: 20120720
  Transmission Date: 20120928
  Serious: Yes (Other)
  Sender: FDA-Public Use
  Company Number: CN-JNJFOC-20120709544

PATIENT
  Age: 33 Year
  Sex: Female

DRUGS (2)
  1. MICONAZOLE NITRATE [Suspect]
     Route: 067
  2. MICONAZOLE NITRATE [Suspect]
     Indication: VAGINAL INFECTION
     Route: 067
     Dates: start: 20120611, end: 20120624

REACTIONS (3)
  - VAGINAL HAEMORRHAGE [None]
  - PROGESTERONE DECREASED [None]
  - MATERNAL EXPOSURE DURING PREGNANCY [None]
